FAERS Safety Report 7115556-8 (Version None)
Quarter: 2010Q4

REPORT INFORMATION
  Report Type: 
  Country: None (occurrence: None)
  Receive Date: 20101122
  Receipt Date: 20101118
  Transmission Date: 20110411
  Serious: Yes (Other)
  Sender: FDA-Public Use
  Company Number: IT-MYLANLABS-2008S1019649

PATIENT
  Age: 49 Year
  Sex: Male

DRUGS (1)
  1. NITRGLYCERIN TRANSDERMAL SYSTEM [Suspect]
     Indication: FROSTBITE
     Route: 062

REACTIONS (2)
  - BRAIN OEDEMA [None]
  - OFF LABEL USE [None]
